FAERS Safety Report 6301881-7 (Version None)
Quarter: 2009Q3

REPORT INFORMATION
  Report Type: 
  Country: None (occurrence: None)
  Receive Date: 20090807
  Receipt Date: 20090728
  Transmission Date: 20100115
  Serious: Yes (Life-Threatening)
  Sender: FDA-Public Use
  Company Number: FR-ABBOTT-09P-056-0587706-00

PATIENT
  Sex: Female

DRUGS (4)
  1. ODRIK [Suspect]
     Indication: HYPERTENSION
     Route: 048
     Dates: start: 20090515, end: 20090524
  2. GLUCOVANCE [Interacting]
     Indication: DIABETES MELLITUS
     Route: 048
     Dates: end: 20090524
  3. METFORMIN HCL [Interacting]
     Indication: DIABETES MELLITUS
     Route: 048
     Dates: end: 20090524
  4. LASIX [Interacting]
     Indication: ACUTE PULMONARY OEDEMA
     Route: 042
     Dates: start: 20090516, end: 20090525

REACTIONS (2)
  - ANURIA [None]
  - RENAL FAILURE ACUTE [None]
